FAERS Safety Report 8607219-4 (Version None)
Quarter: 2012Q3

REPORT INFORMATION
  Report Type: 
  Country: None (occurrence: None)
  Receive Date: 20120821
  Receipt Date: 20120814
  Transmission Date: 20120928
  Serious: No
  Sender: FDA-Public Use
  Company Number: US-BIOGENIDEC-2012BI016460

PATIENT
  Age: 33 Year
  Sex: Female

DRUGS (1)
  1. AVONEX [Suspect]
     Indication: MULTIPLE SCLEROSIS
     Route: 030
     Dates: start: 20110428, end: 20120301

REACTIONS (9)
  - MULTIPLE SCLEROSIS [None]
  - HYPOAESTHESIA [None]
  - CENTRAL NERVOUS SYSTEM LESION [None]
  - HEADACHE [None]
  - MUSCLE SPASMS [None]
  - MUSCULAR WEAKNESS [None]
  - LOSS OF CONTROL OF LEGS [None]
  - FATIGUE [None]
  - MUSCLE TIGHTNESS [None]
